FAERS Safety Report 7451576 (Version 5)
Quarter: 2015Q4

REPORT INFORMATION
  Report Type: Report from Study
  Country: US (occurrence: US)
  Receive Date: 20100701
  Receipt Date: 20151105
  Transmission Date: 20160305
  Serious: Yes (Congenital Anomaly)
  Sender: FDA-Public Use
  Company Number: US-GILEAD-2010-0030045

PATIENT
  Age: 0 Day
  Sex: Female
  Weight: 2.95 kg

DRUGS (11)
  1. ATAZANAVIR SULFATE [Suspect]
     Active Substance: ATAZANAVIR SULFATE
     Dosage: 400 MG, UNK
     Route: 064
     Dates: start: 20090408
  2. RITONAVIR. [Concomitant]
     Active Substance: RITONAVIR
     Indication: HIV INFECTION
     Dosage: 100 MG, QD
     Route: 064
     Dates: start: 20091015, end: 20100602
  3. ZIDOVUDINE. [Concomitant]
     Active Substance: ZIDOVUDINE
     Indication: HIV INFECTION
     Dosage: 2 MG/KG, UNK
     Route: 064
     Dates: start: 20100529, end: 20100529
  4. EFAVIRENZ/EMTRICITABINE/TENOFOVIR DISOPROXIL FUMARATE [Suspect]
     Active Substance: EFAVIRENZ\EMTRICITABINE\TENOFOVIR DISOPROXIL FUMARATE
     Indication: HIV INFECTION
     Route: 064
     Dates: start: 20090903, end: 20090924
  5. ZIDOVUDINE. [Concomitant]
     Active Substance: ZIDOVUDINE
     Dosage: 1 DF, UNK
     Route: 064
     Dates: start: 20100529, end: 20100602
  6. ENGERIX B [Concomitant]
     Route: 064
  7. TRIMETHOPRIM/SULFAMETHOXAZOLE [Concomitant]
     Active Substance: SULFAMETHOXAZOLE\TRIMETHOPRIM
     Route: 064
  8. COMBIVIR [Concomitant]
     Active Substance: LAMIVUDINE\ZIDOVUDINE
     Indication: HIV INFECTION
     Dosage: 2 DF, QD
     Route: 064
     Dates: start: 20091015, end: 20100602
  9. ATAZANAVIR SULFATE [Suspect]
     Active Substance: ATAZANAVIR SULFATE
     Dosage: 1 DF, UNK
     Route: 064
     Dates: start: 20090408, end: 20100602
  10. H1N1 VACCINE [Concomitant]
     Indication: INFLUENZA IMMUNISATION
     Route: 064
  11. ATAZANAVIR SULFATE [Suspect]
     Active Substance: ATAZANAVIR SULFATE
     Indication: HIV INFECTION
     Dosage: 300 MG, QD
     Route: 064
     Dates: start: 20091015, end: 20100408

REACTIONS (2)
  - Foetal exposure during pregnancy [Recovered/Resolved]
  - Acrochordon [Unknown]

NARRATIVE: CASE EVENT DATE: 20100602
